FAERS Safety Report 20082851 (Version 1)
Quarter: 2021Q4

REPORT INFORMATION
  Report Type: Spontaneous
  Country: US (occurrence: None)
  Receive Date: 20211117
  Receipt Date: 20211117
  Transmission Date: 20220303
  Serious: No
  Sender: FDA-Public Use
  Company Number: 2021A787141

PATIENT
  Age: 60 Year
  Sex: Female

DRUGS (5)
  1. FASENRA [Suspect]
     Active Substance: BENRALIZUMAB
     Indication: Asthma
     Route: 058
     Dates: start: 20200908
  2. BUDESONIDE [Concomitant]
     Active Substance: BUDESONIDE
     Dosage: NEBULIZED BUDESONIDE
     Route: 055
  3. ALBUTEROL [Concomitant]
     Active Substance: ALBUTEROL
     Dosage: NEBULIZED ALBUTEROL
     Route: 055
  4. QVAR [Concomitant]
     Active Substance: BECLOMETHASONE DIPROPIONATE
  5. ESTROGENS [Concomitant]
     Active Substance: ESTROGENS

REACTIONS (6)
  - Hypersensitivity [Unknown]
  - Pruritus [Unknown]
  - Scratch [Unknown]
  - Rash pruritic [Unknown]
  - Disease recurrence [Unknown]
  - Treatment delayed [Unknown]
